FAERS Safety Report 6877514-8 (Version None)
Quarter: 2010Q3

REPORT INFORMATION
  Report Type: 
  Country: None (occurrence: None)
  Receive Date: 20100727
  Receipt Date: 20100208
  Transmission Date: 20110219
  Serious: No
  Sender: FDA-Public Use
  Company Number: US-ABBOTT-10P-163-0625594-00

PATIENT
  Sex: Female

DRUGS (4)
  1. SYNTHROID [Suspect]
     Indication: HYPOTHYROIDISM
     Route: 048
     Dates: start: 20070101
  2. TOPROL-XL [Concomitant]
     Indication: HYPERTENSION
     Route: 048
  3. LISINOPRIL [Concomitant]
     Indication: HYPERTENSION
     Route: 048
  4. METFORMIN HCL [Concomitant]
     Indication: DIABETES MELLITUS
     Route: 048

REACTIONS (5)
  - BLOOD PRESSURE SYSTOLIC INCREASED [None]
  - DIARRHOEA [None]
  - DIZZINESS [None]
  - HYPERHIDROSIS [None]
  - NAUSEA [None]
